FAERS Safety Report 9681956 (Version 2)
Quarter: 2014Q2

REPORT INFORMATION
  Report Type: Spontaneous
  Country: US (occurrence: US)
  Receive Date: 20131111
  Receipt Date: 20140602
  Transmission Date: 20141212
  Serious: Yes (Hospitalization)
  Sender: FDA-Public Use
  Company Number: US-PFIZER INC-2013320847

PATIENT
  Age: 65 Year
  Sex: Female
  Weight: 113 kg

DRUGS (4)
  1. CADUET [Suspect]
     Indication: HYPERTENSION
     Dosage: [AMLODIPINE BESILATE 10 MG]/[ATORVASTATIN CALCIUM 20 MG], DAILY
     Dates: start: 2006
  2. PLAVIX [Concomitant]
     Dosage: 75 MG, UNK
  3. FLUOXETINE [Concomitant]
     Indication: DEPRESSION
     Dosage: 20 MG, DAILY
  4. ASPIRIN [Concomitant]
     Dosage: 324 MG(FOUR TABLETS, 81MG EACH), DAILY

REACTIONS (1)
  - Cerebrovascular accident [Recovered/Resolved]
